FAERS Safety Report 8535576 (Version 3)
Quarter: 2012Q4

REPORT INFORMATION
  Report Type: 
  Country: US (occurrence: US)
  Receive Date: 20120430
  Receipt Date: 20121026
  Transmission Date: 20130627
  Serious: Yes (Other)
  Sender: FDA-Public Use
  Company Number: US-PFIZER INC-2012102429

PATIENT
  Age: 52 Year
  Sex: Female

DRUGS (8)
  1. PREMARIN VAGINAL CREAM [Suspect]
     Indication: MENOPAUSE
     Dosage: 0.625 mg/g, daily (on a schedule of three weeks on treatment followed by one week off)
     Route: 067
     Dates: start: 201202
  2. PREMARIN VAGINAL CREAM [Suspect]
     Indication: BLOOD OESTROGEN DECREASED
  3. PRAVASTATIN SODIUM [Suspect]
     Indication: BLOOD CHOLESTEROL INCREASED
     Dosage: UNK, daily
     Route: 048
     Dates: start: 201107
  4. LOVAZA [Suspect]
     Indication: BLOOD CHOLESTEROL INCREASED
     Dosage: two tablets of unknown dose two times a day
     Route: 048
  5. LOVAZA [Suspect]
     Indication: BLOOD TRIGLYCERIDES INCREASED
  6. TRICOR [Suspect]
     Indication: BLOOD CHOLESTEROL INCREASED
     Dosage: UNK, daily
     Dates: end: 201107
  7. PREMARIN [Concomitant]
     Indication: BLOOD OESTROGEN DECREASED
     Dosage: UNK
     Route: 048
     Dates: start: 2012
  8. ESTROGENS CONJUGATED [Concomitant]
     Indication: BLOOD OESTROGEN DECREASED
     Dosage: during the off therapy of conjugated estrogens cream
     Route: 048
     Dates: start: 2012

REACTIONS (10)
  - Liver disorder [Unknown]
  - Hepatic enzyme increased [Unknown]
  - Dysuria [Unknown]
  - Pain in extremity [Unknown]
  - Back pain [Unknown]
  - Arthralgia [Unknown]
  - Product physical issue [Unknown]
  - Activities of daily living impaired [Unknown]
  - Product adhesion issue [Unknown]
  - Chromaturia [Unknown]
